FAERS Safety Report 7467350-6 (Version None)
Quarter: 2011Q2

REPORT INFORMATION
  Report Type: 
  Country: None (occurrence: None)
  Receive Date: 20110509
  Receipt Date: 20101215
  Transmission Date: 20111010
  Serious: No
  Sender: FDA-Public Use
  Company Number: US-ALEXION-A201001623

PATIENT
  Sex: Male

DRUGS (6)
  1. MULTI-VITAMINS [Concomitant]
     Dosage: UNK
     Route: 048
  2. COUMADIN [Concomitant]
     Dosage: 7.5 MG, QD
     Route: 048
  3. AMBIEN [Concomitant]
     Indication: SLEEP DISORDER
     Dosage: 10 MG, QD
     Route: 048
  4. SOLIRIS [Suspect]
     Indication: PAROXYSMAL NOCTURNAL HAEMOGLOBINURIA
     Dosage: 600 MG, QW
     Route: 042
     Dates: start: 20101207, end: 20101228
  5. FISH OIL [Concomitant]
     Dosage: UNK
     Route: 048
  6. SOLIRIS [Suspect]
     Dosage: 900 MG, Q2W
     Route: 042

REACTIONS (2)
  - ORAL HERPES [None]
  - LIMB DISCOMFORT [None]
